FAERS Safety Report 4906959-8 (Version None)
Quarter: 2006Q1

REPORT INFORMATION
  Report Type: 
  Country: None (occurrence: None)
  Receive Date: 20060207
  Receipt Date: 20060112
  Transmission Date: 20060701
  Serious: Yes (Other)
  Sender: FDA-Public Use
  Company Number: ENTC2005-0316

PATIENT
  Age: 71 Year
  Sex: Male

DRUGS (2)
  1. STALEVO 100 [Suspect]
     Indication: PARKINSON'S DISEASE
     Dosage: ORAL
     Route: 048
     Dates: start: 20050101
  2. XATRAL [Concomitant]

REACTIONS (6)
  - ADENOMA BENIGN [None]
  - COLITIS [None]
  - COLONIC POLYP [None]
  - DIARRHOEA [None]
  - ENDOSCOPY GASTROINTESTINAL ABNORMAL [None]
  - EROSIVE OESOPHAGITIS [None]
